FAERS Safety Report 23700896 (Version 1)
Quarter: 2024Q2

REPORT INFORMATION
  Report Type: Spontaneous
  Country: CN (occurrence: CN)
  Receive Date: 20240403
  Receipt Date: 20240403
  Transmission Date: 20240716
  Serious: Yes (Hospitalization)
  Sender: FDA-Public Use
  Company Number: CN-002147023-NVSC2024CN070353

PATIENT
  Age: 28 Year
  Sex: Female
  Weight: 50 kg

DRUGS (1)
  1. TRILEPTAL [Suspect]
     Active Substance: OXCARBAZEPINE
     Indication: Epilepsy
     Dosage: 1 DOSAGE FORM, QD
     Route: 048
     Dates: start: 20240131, end: 20240228

REACTIONS (3)
  - Papule [Recovering/Resolving]
  - Rash erythematous [Recovering/Resolving]
  - Dermatitis allergic [Unknown]

NARRATIVE: CASE EVENT DATE: 20240213
